FAERS Safety Report 6825287-7 (Version None)
Quarter: 2010Q3

REPORT INFORMATION
  Report Type: 
  Country: None (occurrence: None)
  Receive Date: 20100708
  Receipt Date: 20061128
  Transmission Date: 20110219
  Serious: No
  Sender: FDA-Public Use
  Company Number: US-PFIZER INC-2006148884

PATIENT
  Sex: Female
  Weight: 65.77 kg

DRUGS (4)
  1. CHANTIX [Suspect]
     Indication: SMOKING CESSATION THERAPY
     Dates: start: 20061008, end: 20061123
  2. PROTONIX [Concomitant]
  3. MOTRIN [Concomitant]
  4. ANTIDEPRESSANTS [Concomitant]

REACTIONS (3)
  - ABDOMINAL DISTENSION [None]
  - NAUSEA [None]
  - WEIGHT INCREASED [None]
